FAERS Safety Report 4542129-3 (Version None)
Quarter: 2004Q4

REPORT INFORMATION
  Report Type: 
  Country: None (occurrence: None)
  Receive Date: 20041230
  Receipt Date: 20041221
  Transmission Date: 20050328
  Serious: Yes (Other)
  Sender: FDA-Public Use
  Company Number: US-JNJFOC-20041205592

PATIENT

DRUGS (6)
  1. TOPAMAX [Suspect]
     Indication: MATERNAL DRUGS AFFECTING FOETUS
  2. HALDOL [Suspect]
     Indication: MATERNAL DRUGS AFFECTING FOETUS
  3. HALDOL DECANOATE [Suspect]
     Indication: MATERNAL DRUGS AFFECTING FOETUS
  4. GEODON [Concomitant]
     Indication: MATERNAL DRUGS AFFECTING FOETUS
  5. PROZAC [Concomitant]
     Indication: MATERNAL DRUGS AFFECTING FOETUS
  6. SEROQUEL [Concomitant]
     Indication: MATERNAL DRUGS AFFECTING FOETUS
     Route: 064

REACTIONS (4)
  - CLEFT LIP [None]
  - DRUG EXPOSURE DURING PREGNANCY [None]
  - PREGNANCY [None]
  - RENAL HYPOPLASIA [None]
